FAERS Safety Report 9322988 (Version 3)
Quarter: 2014Q1

REPORT INFORMATION
  Report Type: Spontaneous
  Country: US (occurrence: US)
  Receive Date: 20130603
  Receipt Date: 20140212
  Transmission Date: 20141002
  Serious: Yes (Hospitalization)
  Sender: FDA-Public Use
  Company Number: US-B.I. PHARMACEUTICALS,INC./RIDGEFIELD-2013-BI-14728BP

PATIENT
  Age: 69 Year
  Sex: Male
  Weight: 163.29 kg

DRUGS (10)
  1. PRADAXA [Suspect]
     Indication: PRODUCT USED FOR UNKNOWN INDICATION
     Dates: start: 201111, end: 20120109
  2. FUROSEMIDE [Concomitant]
  3. LEVOTHYROXINE [Concomitant]
  4. FINASTERIDE [Concomitant]
  5. ALDACTONE [Concomitant]
  6. ACCUPRIL [Concomitant]
  7. ZAROXOLYN [Concomitant]
  8. HYTRIN [Concomitant]
  9. TYLENOL [Concomitant]
  10. WARFARIN [Concomitant]

REACTIONS (3)
  - Gastrointestinal haemorrhage [Unknown]
  - Pleural effusion [Unknown]
  - Renal failure acute [Recovered/Resolved]
